FAERS Safety Report 7284021-X (Version None)
Quarter: 2011Q1

REPORT INFORMATION
  Report Type: 
  Country: None (occurrence: None)
  Receive Date: 20110209
  Receipt Date: 20110131
  Transmission Date: 20110831
  Serious: Yes (Hospitalization)
  Sender: FDA-Public Use
  Company Number: BR-ASTRAZENECA-2011SE05505

PATIENT
  Age: 379 Month
  Sex: Female
  Weight: 60 kg

DRUGS (1)
  1. ZOLADEX [Suspect]
     Indication: ENDOMETRIOSIS
     Route: 058
     Dates: start: 20080301, end: 20080501

REACTIONS (2)
  - DRUG INEFFECTIVE [None]
  - ENDOMETRIOSIS [None]
